FAERS Safety Report 5390078-3 (Version None)
Quarter: 2007Q3

REPORT INFORMATION
  Report Type: 
  Country: None (occurrence: None)
  Receive Date: 20070718
  Receipt Date: 20070711
  Transmission Date: 20080115
  Serious: Yes (Other)
  Sender: FDA-Public Use
  Company Number: A0663326A

PATIENT
  Age: 72 Year
  Sex: Female

DRUGS (6)
  1. AVANDAMET [Suspect]
     Dosage: 1TAB TWICE PER DAY
     Route: 048
     Dates: start: 20060901
  2. LIPITOR [Concomitant]
  3. LISINOPRIL [Concomitant]
  4. VERAPAMIL [Concomitant]
  5. FAMOTIDINE [Concomitant]
  6. MULTIVITAMIN [Concomitant]

REACTIONS (3)
  - BLOOD SODIUM INCREASED [None]
  - CARBON DIOXIDE DECREASED [None]
  - LACTIC ACIDOSIS [None]
